FAERS Safety Report 17422553 (Version 2)
Quarter: 2020Q1

REPORT INFORMATION
  Report Type: Spontaneous
  Country: ES (occurrence: ES)
  Receive Date: 20200215
  Receipt Date: 20200226
  Transmission Date: 20200409
  Serious: Yes (Hospitalization, Other)
  Sender: FDA-Public Use
  Company Number: ES-AUROBINDO-AUR-APL-2020-008386

PATIENT
  Age: 42 Year
  Sex: Female

DRUGS (7)
  1. TOPIRAMATE. [Suspect]
     Active Substance: TOPIRAMATE
     Indication: SEIZURE
     Dosage: UNK
     Route: 065
  2. METHYLPREDNISOLONE. [Suspect]
     Active Substance: METHYLPREDNISOLONE
     Indication: SEIZURE
     Dosage: UNK,RECEIVED 5 PULSES
     Route: 042
  3. VALPROATE [Suspect]
     Active Substance: VALPROIC ACID
     Indication: SEIZURE
     Dosage: UNK
     Route: 065
  4. CLONAZEPAM. [Suspect]
     Active Substance: CLONAZEPAM
     Indication: SEIZURE
     Dosage: UNK
     Route: 065
  5. LEVETIRACETAM. [Suspect]
     Active Substance: LEVETIRACETAM
     Indication: SEIZURE
     Dosage: UNK
     Route: 065
  6. LACOSAMIDE. [Suspect]
     Active Substance: LACOSAMIDE
     Indication: SEIZURE
     Dosage: UNK
     Route: 065
  7. CARBAMAZEPINE. [Suspect]
     Active Substance: CARBAMAZEPINE
     Indication: SEIZURE
     Dosage: UNK
     Route: 065

REACTIONS (3)
  - Epilepsy [Unknown]
  - Drug ineffective [Unknown]
  - Multiple-drug resistance [Unknown]
